FAERS Safety Report 16841609 (Version 1)
Quarter: 2019Q3

REPORT INFORMATION
  Report Type: Spontaneous
  Country: US (occurrence: US)
  Receive Date: 20190923
  Receipt Date: 20190923
  Transmission Date: 20191005
  Serious: No
  Sender: FDA-Public Use
  Company Number: US-ASSERTIO THERAPEUTICS, INC.-US-2018DEP001995

PATIENT
  Age: 51 Year
  Sex: Female
  Weight: 99.77 kg

DRUGS (5)
  1. LYRICA [Concomitant]
     Active Substance: PREGABALIN
     Indication: PRODUCT USED FOR UNKNOWN INDICATION
     Dosage: UNK
  2. GRALISE [Suspect]
     Active Substance: GABAPENTIN
     Indication: FIBROMYALGIA
     Dosage: 1200 MG, QD
     Route: 065
     Dates: start: 20181112
  3. GRALISE [Suspect]
     Active Substance: GABAPENTIN
     Indication: SMALL FIBRE NEUROPATHY
     Dosage: 1800 MG, UNK
  4. PERCOCET                           /00446701/ [Concomitant]
     Active Substance: ACETAMINOPHEN\OXYCODONE HYDROCHLORIDE\OXYCODONE TEREPHTHALATE
     Indication: PRODUCT USED FOR UNKNOWN INDICATION
     Dosage: UNK
  5. GRALISE [Suspect]
     Active Substance: GABAPENTIN
     Indication: NEURALGIA

REACTIONS (2)
  - Product use in unapproved indication [Unknown]
  - Adverse event [Not Recovered/Not Resolved]

NARRATIVE: CASE EVENT DATE: 20181112
